FAERS Safety Report 8300765-2 (Version None)
Quarter: 2012Q2

REPORT INFORMATION
  Report Type: 
  Country: None (occurrence: None)
  Receive Date: 20120419
  Receipt Date: 20120419
  Transmission Date: 20120825
  Serious: Yes (Hospitalization)
  Sender: FDA-Public Use
  Company Number: None

PATIENT
  Sex: Male
  Weight: 51 kg

DRUGS (4)
  1. G-CSF (FILGRASTIM, AMGEN) [Suspect]
     Dosage: 4250 MG
  2. CYCLOPHOSPHAMIDE [Suspect]
     Dosage: 3300 MG
  3. METHOTREXATE [Suspect]
     Dosage: 6750 MG
  4. ETOPOSIDE [Suspect]
     Dosage: 750 MG

REACTIONS (4)
  - LYMPHADENOPATHY [None]
  - CELLULITIS [None]
  - TRACHEAL STENOSIS [None]
  - ABSCESS NECK [None]
